FAERS Safety Report 17526906 (Version 1)
Quarter: 2020Q1

REPORT INFORMATION
  Report Type: Other
  Country: TW (occurrence: TW)
  Receive Date: 20200310
  Receipt Date: 20200310
  Transmission Date: 20200409
  Serious: Yes (Life-Threatening, Hospitalization, Disabling)
  Sender: FDA-Public Use
  Company Number: TW-NOSTRUM LABORATORIES, INC.-2081493

PATIENT
  Age: 52 Year
  Sex: Female

DRUGS (1)
  1. METFORMIN HYDROCHLORIDE EXTENDED-RELEASE [Suspect]
     Active Substance: METFORMIN HYDROCHLORIDE
     Indication: TYPE 2 DIABETES MELLITUS
     Route: 048

REACTIONS (3)
  - Lactic acidosis [Recovered/Resolved with Sequelae]
  - Generalised tonic-clonic seizure [Recovered/Resolved]
  - MELAS syndrome [Not Recovered/Not Resolved]
